FAERS Safety Report 14744272 (Version 6)
Quarter: 2020Q2

REPORT INFORMATION
  Report Type: Spontaneous
  Country: US (occurrence: US)
  Receive Date: 20180411
  Receipt Date: 20200603
  Transmission Date: 20200713
  Serious: No
  Sender: FDA-Public Use
  Company Number: US-PFIZER INC-2018146030

PATIENT
  Age: 48 Year
  Sex: Female

DRUGS (2)
  1. IBRANCE [Suspect]
     Active Substance: PALBOCICLIB
     Indication: BREAST CANCER FEMALE
     Dosage: 125 MG, CYCLIC (1X/DAY, 21 DAYS ON/7 DAYS OFF)
     Route: 048
     Dates: start: 20170427
  2. IBRANCE [Suspect]
     Active Substance: PALBOCICLIB
     Dosage: 125 MG, CYCLIC (1X/DAY, 21 DAYS ON/7DAYS OFF)
     Route: 048
     Dates: start: 20180117

REACTIONS (3)
  - Fatigue [Not Recovered/Not Resolved]
  - Stomatitis [Unknown]
  - Alopecia [Unknown]

NARRATIVE: CASE EVENT DATE: 20180409
